FAERS Safety Report 10309192 (Version 1)
Quarter: 2014Q3

REPORT INFORMATION
  Report Type: Spontaneous
  Country: CA (occurrence: CA)
  Receive Date: 20140716
  Receipt Date: 20140716
  Transmission Date: 20150326
  Serious: Yes (Hospitalization)
  Sender: FDA-Public Use
  Company Number: CA-B.I. PHARMACEUTICALS,INC./RIDGEFIELD-2014-BI-32128CN

PATIENT
  Sex: Male

DRUGS (1)
  1. PRADAXA [Suspect]
     Active Substance: DABIGATRAN ETEXILATE MESYLATE
     Indication: ANTICOAGULANT THERAPY
     Route: 065
     Dates: start: 20110401

REACTIONS (14)
  - Cerebrovascular accident [Unknown]
  - Emotional disorder [Unknown]
  - Fatigue [Unknown]
  - Musculoskeletal disorder [Unknown]
  - Reading disorder [Unknown]
  - Speech disorder developmental [Unknown]
  - Anhedonia [Unknown]
  - Abasia [Unknown]
  - Loss of employment [Unknown]
  - Low income [Unknown]
  - Economic problem [Unknown]
  - Dysgraphia [Unknown]
  - Wheelchair user [Unknown]
  - Cognitive disorder [Unknown]

NARRATIVE: CASE EVENT DATE: 20110704
